FAERS Safety Report 17968035 (Version 1)
Quarter: 2020Q3

REPORT INFORMATION
  Report Type: Spontaneous
  Country: ES (occurrence: ES)
  Receive Date: 20200701
  Receipt Date: 20200701
  Transmission Date: 20201103
  Serious: Yes (Hospitalization)
  Sender: FDA-Public Use
  Company Number: NVSC2020ES182671

PATIENT
  Age: 67 Year
  Sex: Female

DRUGS (2)
  1. MEKINIST [Suspect]
     Active Substance: TRAMETINIB DIMETHYL SULFOXIDE
     Indication: MALIGNANT MELANOMA STAGE IV
     Dosage: 1 MG, QD
     Route: 048
     Dates: start: 20180702, end: 20181014
  2. DABRAFENIB [Suspect]
     Active Substance: DABRAFENIB
     Indication: MALIGNANT MELANOMA STAGE IV
     Dosage: 75 MG, Q12H (75 MG CADA 12 H)
     Route: 048
     Dates: start: 20180702, end: 20181014

REACTIONS (1)
  - Vogt-Koyanagi-Harada disease [Recovered/Resolved]

NARRATIVE: CASE EVENT DATE: 20181014
